FAERS Safety Report 6651910-6 (Version None)
Quarter: 2010Q1

REPORT INFORMATION
  Report Type: 
  Country: None (occurrence: None)
  Receive Date: 20100325
  Receipt Date: 20100318
  Transmission Date: 20100710
  Serious: Yes (Other)
  Sender: FDA-Public Use
  Company Number: PHHY2010BR16891

PATIENT
  Sex: Male
  Weight: 90 kg

DRUGS (3)
  1. CODATEN [Suspect]
     Indication: RENAL COLIC
     Dosage: 50 MG
     Route: 048
     Dates: start: 20100227
  2. LOSARTAN POTASSIUM [Concomitant]
     Dosage: 50 MG, UNK
  3. METFORMIN HCL [Concomitant]
     Dosage: 500 MG, UNK

REACTIONS (1)
  - NEPHROLITHIASIS [None]
